FAERS Safety Report 7045038-3 (Version None)
Quarter: 2010Q4

REPORT INFORMATION
  Report Type: 
  Country: None (occurrence: None)
  Receive Date: 20101014
  Receipt Date: 20101005
  Transmission Date: 20110411
  Serious: Yes (Other)
  Sender: FDA-Public Use
  Company Number: US-SANOFI-AVENTIS-A03200903907

PATIENT
  Age: 72 Year
  Sex: Female

DRUGS (11)
  1. DRONEDARONE HCL [Suspect]
     Indication: ATRIAL FIBRILLATION
     Dosage: UNIT DOSE: 400 MG
     Route: 048
     Dates: start: 20090820
  2. DRONEDARONE HCL [Suspect]
     Route: 048
     Dates: end: 20100801
  3. ATENOLOL [Concomitant]
     Indication: HEART RATE ABNORMAL
     Route: 065
  4. SYNTHROID [Concomitant]
     Route: 065
  5. ZOCOR [Concomitant]
     Route: 065
  6. ATIVAN [Concomitant]
     Route: 065
  7. ATIVAN [Concomitant]
     Indication: ANXIETY
     Route: 065
  8. COUMADIN [Concomitant]
     Indication: ATRIAL FIBRILLATION
     Route: 065
  9. ASPIRIN [Concomitant]
     Dosage: UNIT DOSE: 81 MG
     Route: 048
  10. VITAMIN D [Concomitant]
     Indication: VITAMIN D DECREASED
     Route: 065
  11. PREVACID [Concomitant]
     Route: 065

REACTIONS (7)
  - ABDOMINAL DISCOMFORT [None]
  - ASTHENIA [None]
  - ATRIAL FIBRILLATION [None]
  - DIARRHOEA [None]
  - FLATULENCE [None]
  - INCORRECT DOSE ADMINISTERED [None]
  - PALPITATIONS [None]
